FAERS Safety Report 9780705 (Version 2)
Quarter: 2014Q1

REPORT INFORMATION
  Report Type: Spontaneous
  Country: US (occurrence: US)
  Receive Date: 20131224
  Receipt Date: 20140318
  Transmission Date: 20141002
  Serious: Yes (Other)
  Sender: FDA-Public Use
  Company Number: PHEH2013US025825

PATIENT
  Sex: Female

DRUGS (2)
  1. AREDIA [Suspect]
     Indication: NEOPLASM MALIGNANT
  2. ZOMETA [Suspect]
     Indication: NEOPLASM MALIGNANT

REACTIONS (13)
  - Osteonecrosis of jaw [Unknown]
  - Bone disorder [Unknown]
  - Femur fracture [Unknown]
  - Pain [Unknown]
  - Discomfort [Unknown]
  - Dysphagia [Unknown]
  - Emotional distress [Unknown]
  - Anxiety [Unknown]
  - Deformity [Unknown]
  - Anhedonia [Unknown]
  - Injury [Unknown]
  - Physical disability [Unknown]
  - Gait disturbance [Unknown]
